FAERS Safety Report 8481270-X (Version None)
Quarter: 2012Q2

REPORT INFORMATION
  Report Type: 
  Country: None (occurrence: None)
  Receive Date: 20120625
  Receipt Date: 20120615
  Transmission Date: 20120825
  Serious: Yes (Death)
  Sender: FDA-Public Use
  Company Number: ADR-2012-01153

PATIENT
  Age: 78 Year
  Sex: Male

DRUGS (1)
  1. BACLOFEN [Suspect]
     Indication: EXTRADURAL ABSCESS

REACTIONS (1)
  - CEREBELLAR INFARCTION [None]
